FAERS Safety Report 15842047 (Version 4)
Quarter: 2019Q1

REPORT INFORMATION
  Report Type: Report from Study
  Country: JP (occurrence: JP)
  Receive Date: 20190118
  Receipt Date: 20190215
  Transmission Date: 20190417
  Serious: Yes (Hospitalization)
  Sender: FDA-Public Use
  Company Number: JP-TEVA-2018-JP-981139

PATIENT
  Age: 75 Year
  Sex: Male

DRUGS (23)
  1. LANSOPRAZOLE. [Concomitant]
     Active Substance: LANSOPRAZOLE
     Indication: GASTRIC MUCOSAL LESION
     Route: 048
     Dates: start: 20181010
  2. FOLIC ACID. [Concomitant]
     Active Substance: FOLIC ACID
     Indication: PERIPHERAL VASCULAR DISORDER
     Route: 048
     Dates: start: 20181230
  3. BRIMONIDINE TARTRATE. [Concomitant]
     Active Substance: BRIMONIDINE TARTRATE
     Indication: GLAUCOMA
     Dosage: UNK UNK, TWICE DAILY (BOTH EYES)
     Route: 047
     Dates: start: 201607
  4. ZOLPIDEM TARTRATE. [Concomitant]
     Active Substance: ZOLPIDEM TARTRATE
     Indication: INSOMNIA
     Dosage: 5 MILLIGRAM DAILY; 5 MG, TABLET, ONCE DAILY (BEFORE BEDTIME OR AS NEEDED)
     Route: 048
     Dates: start: 20140325
  5. RITUXIMAB. [Suspect]
     Active Substance: RITUXIMAB
     Dosage: 575 MG/M2, CYCLIC  (DAY1 OF EACH 21-DAY CYCLE)
     Route: 041
     Dates: start: 20181220
  6. RITUXIMAB. [Suspect]
     Active Substance: RITUXIMAB
     Dosage: 585 MGX1/DAY, CYCLIC (DAY 1, CYCLE 2)
     Route: 041
     Dates: start: 20181031
  7. EDOXABAN TOSILATE [Concomitant]
     Active Substance: EDOXABAN TOSYLATE
     Indication: THROMBOSIS PROPHYLAXIS
     Dosage: 30 MILLIGRAM DAILY;
     Route: 048
     Dates: start: 2016
  8. SENNOSIDE                          /00571901/ [Concomitant]
     Active Substance: SENNOSIDES A AND B
     Indication: CONSTIPATION
     Dosage: 2 DOSAGE FORMS DAILY;
     Route: 048
     Dates: start: 20180312
  9. BENDAMUSTINE HYDROCHLORIDE. [Suspect]
     Active Substance: BENDAMUSTINE HYDROCHLORIDE
     Dosage: 60 MG/M2 PER DAY, CYCLIC (DAY2 AND DAY3 OF EACH 21-DAY CYCLE)
     Route: 042
     Dates: start: 20181221, end: 20181222
  10. TRIMETHOPRIM SULFAMETHOXAZOLE [Concomitant]
     Active Substance: SULFAMETHOXAZOLE\TRIMETHOPRIM
     Indication: INFECTION PROPHYLAXIS
     Route: 048
     Dates: start: 20181230
  11. ROSUVASTATIN. [Concomitant]
     Active Substance: ROSUVASTATIN
     Indication: DYSLIPIDAEMIA
     Dosage: 2.5 MILLIGRAM DAILY;
     Route: 048
     Dates: start: 201807
  12. ASPIRIN. [Concomitant]
     Active Substance: ASPIRIN
     Indication: THROMBOSIS PROPHYLAXIS
     Dosage: 100 MILLIGRAM DAILY;
     Route: 048
     Dates: start: 20131206
  13. BENDAMUSTINE HYDROCHLORIDE. [Suspect]
     Active Substance: BENDAMUSTINE HYDROCHLORIDE
     Indication: DIFFUSE LARGE B-CELL LYMPHOMA
     Dosage: 120 MG/M2 PER DAY, CYCLIC (DAY 2-DAY 3, CYCLE 1)
     Route: 042
     Dates: start: 20181005, end: 20181006
  14. BENDAMUSTINE HYDROCHLORIDE. [Suspect]
     Active Substance: BENDAMUSTINE HYDROCHLORIDE
     Dosage: 60 MG/M2 PER DAY, CYCLIC (DAY2 AND DAY3 OF EACH 21-DAY CYCLE)
     Route: 042
     Dates: start: 20181130, end: 20181201
  15. RITUXIMAB. [Suspect]
     Active Substance: RITUXIMAB
     Dosage: 575 MGX1/DAY, CYCLIC (DAY 1, CYCLE 3)
     Route: 041
     Dates: start: 20181129
  16. BENDAMUSTINE HYDROCHLORIDE. [Suspect]
     Active Substance: BENDAMUSTINE HYDROCHLORIDE
     Dosage: 140 MG/M2 PER DAY, CYCLIC (DAY 2-DAY 3, CYCLE 2)
     Route: 042
     Dates: start: 20181101, end: 20181102
  17. BENDAMUSTINE HYDROCHLORIDE. [Suspect]
     Active Substance: BENDAMUSTINE HYDROCHLORIDE
     Dosage: 90MG/M2X1/DAY, CYCLIC (DAY2 AND DAY3 OF EACH 21-DAY CYCLE- 5)
     Route: 042
     Dates: start: 20190122, end: 20190123
  18. RITUXIMAB. [Suspect]
     Active Substance: RITUXIMAB
     Indication: DIFFUSE LARGE B-CELL LYMPHOMA
     Dosage: 375 MG/M2X1/DAY, CYCLIC (DAY 1, CYCLE 1)
     Route: 041
     Dates: start: 20181004
  19. RITUXIMAB. [Suspect]
     Active Substance: RITUXIMAB
     Dosage: 570MGX1/DAY, CYCLIC (DAY1 OF EACH 21-DAY CYCLE)
     Route: 041
     Dates: start: 20190121
  20. ITRACONAZOLE. [Concomitant]
     Active Substance: ITRACONAZOLE
     Indication: INFECTION PROPHYLAXIS
     Dosage: 2 DOSAGE FORMS DAILY; 2 DF, ONCE DAILY (AFTER LUNCH)
     Route: 048
     Dates: start: 20181221
  21. AMPHOTERICIN B. [Concomitant]
     Active Substance: AMPHOTERICIN B
     Indication: INFECTION PROPHYLAXIS
     Dosage: 10 ML DAILY;
     Route: 049
     Dates: start: 20161125
  22. MAGNESIUM OXIDE. [Concomitant]
     Active Substance: MAGNESIUM OXIDE
     Indication: CONSTIPATION
     Route: 048
     Dates: start: 20180912
  23. LATANOPROST. [Concomitant]
     Active Substance: LATANOPROST
     Indication: GLAUCOMA
     Dosage: UNK UNK, ONCE DAILY BOTH EYES)
     Route: 065
     Dates: start: 201607

REACTIONS (2)
  - Upper respiratory tract inflammation [Recovered/Resolved]
  - Dehydration [Recovered/Resolved]

NARRATIVE: CASE EVENT DATE: 20181116
